FAERS Safety Report 24728795 (Version 1)
Quarter: 2024Q4

REPORT INFORMATION
  Report Type: Spontaneous
  Country: CA (occurrence: CA)
  Receive Date: 20241212
  Receipt Date: 20241212
  Transmission Date: 20250114
  Serious: Yes (Hospitalization, Other)
  Sender: CELLTRION
  Company Number: CA-CELLTRION INC.-2024CA031071

PATIENT

DRUGS (7)
  1. ADALIMUMAB [Suspect]
     Active Substance: ADALIMUMAB
     Indication: Retinal vasculitis
     Dosage: 40 MG
     Route: 058
  2. AZATHIOPRINE [Concomitant]
     Active Substance: AZATHIOPRINE
     Dosage: 125 MG, EVERY 1 DAYS
  3. PREDNISONE [Concomitant]
     Active Substance: PREDNISONE
     Dosage: 50 MG, 1 EVERY 1 DAYS
  4. PREDNISONE [Concomitant]
     Active Substance: PREDNISONE
     Dosage: 60 MG, EVERY 1 DAYS
  5. RITUXIMAB [Concomitant]
     Active Substance: RITUXIMAB
     Dosage: 675 MG
     Route: 042
  6. RITUXIMAB [Concomitant]
     Active Substance: RITUXIMAB
     Dosage: 1 DF
     Route: 042
  7. RITUXIMAB [Concomitant]
     Active Substance: RITUXIMAB
     Dosage: 1 DF
     Route: 042

REACTIONS (5)
  - Anaphylactic reaction [Unknown]
  - Infusion related reaction [Unknown]
  - Drug ineffective for unapproved indication [Unknown]
  - Off label use [Unknown]
  - Intentional product use issue [Unknown]
